FAERS Safety Report 16982179 (Version 1)
Quarter: 2019Q4

REPORT INFORMATION
  Report Type: Report from Study
  Country: US (occurrence: US)
  Receive Date: 20191101
  Receipt Date: 20191101
  Transmission Date: 20200122
  Serious: Yes (Death)
  Sender: FDA-Public Use
  Company Number: US-ASTRAZENECA-2019SF53857

PATIENT
  Age: 20727 Day
  Sex: Male

DRUGS (14)
  1. CALQUENCE [Suspect]
     Active Substance: ACALABRUTINIB
     Indication: MANTLE CELL LYMPHOMA
     Route: 048
     Dates: start: 20190720
  2. WARFARIN [Concomitant]
     Active Substance: WARFARIN
  3. SERTRALINE [Concomitant]
     Active Substance: SERTRALINE HYDROCHLORIDE
  4. SYMBICORT [Suspect]
     Active Substance: BUDESONIDE\FORMOTEROL FUMARATE DIHYDRATE
     Route: 055
  5. DOXAZOSIN [Concomitant]
     Active Substance: DOXAZOSIN MESYLATE
  6. FIORCET [Concomitant]
  7. PROVENTIL [Concomitant]
     Active Substance: ALBUTEROL
  8. CALQUENCE [Suspect]
     Active Substance: ACALABRUTINIB
     Indication: MANTLE CELL LYMPHOMA
     Route: 048
     Dates: start: 20190720
  9. CETIRIZINE [Concomitant]
     Active Substance: CETIRIZINE HYDROCHLORIDE
  10. VITAMIN D3 [Concomitant]
     Active Substance: CHOLECALCIFEROL
  11. ATORVASTATIN [Concomitant]
     Active Substance: ATORVASTATIN
  12. CARVEDILOL. [Concomitant]
     Active Substance: CARVEDILOL
  13. VENTOLIN [Concomitant]
     Active Substance: ALBUTEROL SULFATE
  14. TYLENOL [Concomitant]
     Active Substance: ACETAMINOPHEN

REACTIONS (1)
  - Death [Fatal]

NARRATIVE: CASE EVENT DATE: 20191028
